FAERS Safety Report 6143402-8 (Version None)
Quarter: 2009Q2

REPORT INFORMATION
  Report Type: 
  Country: None (occurrence: None)
  Receive Date: 20090401
  Receipt Date: 20090324
  Transmission Date: 20091009
  Serious: Yes (Hospitalization)
  Sender: FDA-Public Use
  Company Number: 189059USA

PATIENT
  Age: 30 Year
  Sex: Female

DRUGS (1)
  1. CLARAVIS [Suspect]
     Dosage: ORAL
     Route: 048
     Dates: start: 20081203

REACTIONS (3)
  - IMMUNE SYSTEM DISORDER [None]
  - PHARYNGITIS STREPTOCOCCAL [None]
  - PNEUMONIA [None]
